FAERS Safety Report 21812698 (Version 3)
Quarter: 2023Q1

REPORT INFORMATION
  Report Type: Spontaneous
  Country: DE (occurrence: DE)
  Receive Date: 20230103
  Receipt Date: 20230310
  Transmission Date: 20230418
  Serious: Yes (Hospitalization, Other)
  Sender: FDA-Public Use
  Company Number: DE-JNJFOC-20221249065

PATIENT
  Age: 32 Year
  Sex: Male

DRUGS (6)
  1. LORAZEPAM [Suspect]
     Active Substance: LORAZEPAM
     Indication: Schizophrenia
     Dosage: 4 MG
     Route: 048
     Dates: start: 20220425, end: 20220608
  2. FLUPENTIXOL [Suspect]
     Active Substance: FLUPENTIXOL
     Indication: Schizophrenia
     Dosage: 5 MG, 2X/DAY, MORNING AND NIGHT
     Route: 048
     Dates: start: 20220522, end: 20220523
  3. CARIPRAZINE [Suspect]
     Active Substance: CARIPRAZINE
     Indication: Schizophrenia
     Dosage: 3 MG
     Route: 048
     Dates: start: 20220524, end: 20220720
  4. RISPERDAL [Suspect]
     Active Substance: RISPERIDONE
     Indication: Schizophrenia
     Dosage: 4 MG, 1X/DAY
     Route: 048
     Dates: start: 20220511
  5. PIPAMPERONE [Suspect]
     Active Substance: PIPAMPERONE
     Indication: Schizophrenia
     Dosage: 180 MG, 1X/DAY
     Route: 048
     Dates: start: 20220601
  6. PIPAMPERONE [Suspect]
     Active Substance: PIPAMPERONE
     Dosage: 240 MG
     Route: 048
     Dates: start: 20220502, end: 20220601

REACTIONS (3)
  - Dyskinesia [Recovering/Resolving]
  - Joint dislocation [Recovering/Resolving]
  - Off label use [Unknown]

NARRATIVE: CASE EVENT DATE: 20220425
